FAERS Safety Report 9422742 (Version 2)
Quarter: 2013Q3

REPORT INFORMATION
  Report Type: Spontaneous
  Country: US (occurrence: None)
  Receive Date: 20130724
  Receipt Date: 20130807
  Transmission Date: 20140515
  Serious: Yes (Hospitalization, Disabling)
  Sender: FDA-Public Use
  Company Number: 2013S1014593

PATIENT
  Age: 69 Year
  Sex: Female

DRUGS (7)
  1. ALBUTEROL SULFATE INHALATION SOLUTION 0.083% [Suspect]
     Indication: CHRONIC OBSTRUCTIVE PULMONARY DISEASE
     Route: 055
     Dates: start: 2002
  2. IPRATROPIUM BROMIDE INHALATION SOLUTION [Suspect]
     Indication: CHRONIC OBSTRUCTIVE PULMONARY DISEASE
     Route: 055
     Dates: start: 2002
  3. INSULIN GLARGINE [Concomitant]
  4. LEVOTHYROXINE [Concomitant]
  5. LYRICA [Concomitant]
  6. VITAMIN D [Concomitant]
  7. IRON [Concomitant]

REACTIONS (3)
  - Loss of consciousness [None]
  - Respiratory arrest [None]
  - Chronic obstructive pulmonary disease [None]
